FAERS Safety Report 6640778-X (Version None)
Quarter: 2010Q1

REPORT INFORMATION
  Report Type: 
  Country: None (occurrence: None)
  Receive Date: 20100318
  Receipt Date: 20100308
  Transmission Date: 20100710
  Serious: Yes (Death, Hospitalization)
  Sender: FDA-Public Use
  Company Number: CA-PFIZER INC-2010030417

PATIENT
  Age: 44 Year
  Sex: Male

DRUGS (9)
  1. MARAVIROC [Suspect]
     Indication: HIV INFECTION
     Dosage: 400 MG, 2X/DAY
     Route: 048
     Dates: start: 20060101, end: 20070101
  2. LASIX [Concomitant]
     Dosage: UNK
     Route: 048
     Dates: start: 20090101, end: 20100115
  3. SPIRONOLACTONE [Concomitant]
     Dosage: UNK
     Route: 048
     Dates: start: 20090101, end: 20100115
  4. LACTULOSE [Concomitant]
     Dosage: UNK
     Route: 048
     Dates: start: 20090101, end: 20100115
  5. ATAZANAVIR [Concomitant]
     Dosage: UNK
     Route: 048
     Dates: start: 20070501, end: 20100115
  6. RITONAVIR [Concomitant]
     Dosage: UNK
     Route: 048
     Dates: start: 20070501, end: 20100115
  7. TRUVADA [Concomitant]
     Dosage: UNK
     Route: 048
     Dates: start: 20070501, end: 20100115
  8. RALTEGRAVIR [Concomitant]
     Dosage: UNK
     Route: 048
     Dates: start: 20071001, end: 20100115
  9. ATOVAQUONE [Concomitant]
     Dosage: UNK
     Route: 048
     Dates: start: 20070101, end: 20100115

REACTIONS (2)
  - CHRONIC HEPATIC FAILURE [None]
  - HEPATIC ENCEPHALOPATHY [None]
